FAERS Safety Report 13674161 (Version 1)
Quarter: 2017Q2

REPORT INFORMATION
  Report Type: Spontaneous
  Country: US (occurrence: US)
  Receive Date: 20170621
  Receipt Date: 20170621
  Transmission Date: 20170830
  Serious: Yes (Hospitalization)
  Sender: FDA-Public Use
  Company Number: US-INTERPRAG-PM-OCA2017-00323

PATIENT

DRUGS (5)
  1. NIFEDICAL XL [Concomitant]
     Active Substance: NIFEDIPINE
  2. OCALIVA [Suspect]
     Active Substance: OBETICHOLIC ACID
     Indication: BILIARY CIRRHOSIS PRIMARY
     Dosage: 5 MG, QD
     Route: 048
     Dates: start: 20170404
  3. PROPRANOLOL [Concomitant]
     Active Substance: PROPRANOLOL HYDROCHLORIDE
  4. HYDROXYCHLOROQUINE [Concomitant]
     Active Substance: HYDROXYCHLOROQUINE
  5. URSODIOL. [Concomitant]
     Active Substance: URSODIOL

REACTIONS (4)
  - Fluid retention [Unknown]
  - Pruritus [Unknown]
  - Abdominal tenderness [Unknown]
  - Constipation [Unknown]

NARRATIVE: CASE EVENT DATE: 20170607
